FAERS Safety Report 8250920-5 (Version None)
Quarter: 2012Q2

REPORT INFORMATION
  Report Type: 
  Country: None (occurrence: None)
  Receive Date: 20120402
  Receipt Date: 20120326
  Transmission Date: 20120825
  Serious: Yes (Other)
  Sender: FDA-Public Use
  Company Number: US-ASTRAZENECA-2012SE20257

PATIENT
  Age: 84 Year
  Sex: Female
  Weight: 72.6 kg

DRUGS (9)
  1. ARCADIA [Concomitant]
     Indication: HEART RATE IRREGULAR
  2. PROTONICS [Concomitant]
  3. SIMVASTATIN [Concomitant]
     Indication: BLOOD CHOLESTEROL INCREASED
  4. PROLIA [Concomitant]
     Indication: OSTEOPOROSIS
     Dosage: 2 SHOTS A YEAR
  5. CONDRITIN [Concomitant]
     Indication: CHONDROPATHY
  6. NEXIUM [Suspect]
     Indication: GASTROOESOPHAGEAL REFLUX DISEASE
     Route: 048
  7. VITAMIN D [Concomitant]
  8. COUMADIN [Concomitant]
  9. CALCIUM CARBONATE [Concomitant]

REACTIONS (5)
  - BODY HEIGHT DECREASED [None]
  - COMPRESSION FRACTURE [None]
  - ATRIAL FIBRILLATION [None]
  - SPINAL FRACTURE [None]
  - GAIT DISTURBANCE [None]
